FAERS Safety Report 12660739 (Version 2)
Quarter: 2016Q3

REPORT INFORMATION
  Report Type: Spontaneous
  Country: US (occurrence: US)
  Receive Date: 20160817
  Receipt Date: 20160901
  Transmission Date: 20161109
  Serious: No
  Sender: FDA-Public Use
  Company Number: US-RELYPSA-RLY2016001189

PATIENT
  Age: 87 Year
  Sex: Female

DRUGS (6)
  1. VELTASSA [Suspect]
     Active Substance: PATIROMER
     Indication: HYPERKALAEMIA
     Dosage: 8.4 G, Q.D.
     Route: 048
     Dates: start: 201606, end: 20160624
  2. DILTIAZEM. [Concomitant]
     Active Substance: DILTIAZEM
  3. VALSARTAN. [Concomitant]
     Active Substance: VALSARTAN
  4. CARVEDILOL. [Concomitant]
     Active Substance: CARVEDILOL
  5. IRON [Concomitant]
     Active Substance: IRON
  6. CLONIDINE. [Concomitant]
     Active Substance: CLONIDINE

REACTIONS (4)
  - Somnolence [Not Recovered/Not Resolved]
  - Muscle spasms [Not Recovered/Not Resolved]
  - Fatigue [Not Recovered/Not Resolved]
  - Limb discomfort [Not Recovered/Not Resolved]

NARRATIVE: CASE EVENT DATE: 201606
